FAERS Safety Report 24458021 (Version 1)
Quarter: 2024Q4

REPORT INFORMATION
  Report Type: Report from Study
  Country: US (occurrence: US)
  Receive Date: 20241018
  Receipt Date: 20241018
  Transmission Date: 20250114
  Serious: No
  Sender: ROCHE
  Company Number: US-ROCHE-3441840

PATIENT
  Age: 54 Year
  Sex: Male

DRUGS (3)
  1. CATHFLO ACTIVASE [Suspect]
     Active Substance: ALTEPLASE
     Indication: Embolism
     Dosage: SIZE/STRENGTH: 2MG, TO BE ADMINISTERED PRN.?DATE OF SERVICE: 22/SEP/2023, 09/0CT/2023, 10/OCT/2023
     Route: 065
  2. CATHFLO ACTIVASE [Suspect]
     Active Substance: ALTEPLASE
     Indication: Pelvic venous thrombosis
  3. CATHFLO ACTIVASE [Suspect]
     Active Substance: ALTEPLASE
     Indication: Vascular compression

REACTIONS (2)
  - Off label use [Unknown]
  - No adverse event [Unknown]
